FAERS Safety Report 6047068-7 (Version None)
Quarter: 2009Q1

REPORT INFORMATION
  Report Type: 
  Country: None (occurrence: None)
  Receive Date: 20090122
  Receipt Date: 20090115
  Transmission Date: 20090719
  Serious: Yes (Other)
  Sender: FDA-Public Use
  Company Number: CA-ASTRAZENECA-2009UW01706

PATIENT
  Age: 53 Year
  Sex: Female
  Weight: 70.3 kg

DRUGS (2)
  1. CRESTOR [Suspect]
     Route: 048
  2. TEGRETOL [Concomitant]

REACTIONS (2)
  - AMNESIA [None]
  - CONVULSION [None]
